FAERS Safety Report 13028365 (Version 2)
Quarter: 2017Q1

REPORT INFORMATION
  Report Type: Spontaneous
  Country: JP (occurrence: JP)
  Receive Date: 20161214
  Receipt Date: 20170201
  Transmission Date: 20170428
  Serious: Yes (Life-Threatening)
  Sender: FDA-Public Use
  Company Number: JP-SA-2016SA223437

PATIENT
  Age: 57 Year
  Sex: Female
  Weight: 90 kg

DRUGS (21)
  1. POLARAMINE [Concomitant]
     Active Substance: DEXCHLORPHENIRAMINE MALEATE
     Route: 065
     Dates: start: 20161011, end: 20161116
  2. GLYCEOL [Concomitant]
     Active Substance: GLYCERIN
     Route: 065
     Dates: start: 20161115, end: 20161117
  3. ELPLAT [Suspect]
     Active Substance: OXALIPLATIN
     Indication: COLON CANCER
     Route: 041
     Dates: start: 20161011, end: 20161011
  4. SEROTONE [Concomitant]
     Active Substance: AZASETRON HYDROCHLORIDE
     Route: 065
     Dates: start: 20161011, end: 20161115
  5. SOLU-CORTEF [Concomitant]
     Active Substance: HYDROCORTISONE SODIUM SUCCINATE
     Route: 065
     Dates: start: 20161115, end: 20161115
  6. AMLODIPINE BESILATE [Concomitant]
     Active Substance: AMLODIPINE BESYLATE
     Route: 065
  7. XELODA [Concomitant]
     Active Substance: CAPECITABINE
     Route: 065
     Dates: start: 20161011, end: 20161025
  8. BOSMIN [Concomitant]
     Active Substance: EPINEPHRINE
     Route: 065
     Dates: start: 20161115, end: 20161115
  9. CERCINE [Concomitant]
     Active Substance: DIAZEPAM
     Route: 065
     Dates: start: 20161115, end: 20161115
  10. ARTIST [Concomitant]
     Active Substance: CARVEDILOL
     Route: 065
  11. LASIX [Concomitant]
     Active Substance: FUROSEMIDE
     Route: 048
  12. DECADRON [Concomitant]
     Active Substance: DEXAMETHASONE
     Route: 065
     Dates: start: 20161011, end: 20161115
  13. ELPLAT [Suspect]
     Active Substance: OXALIPLATIN
     Indication: COLON CANCER
     Route: 041
     Dates: start: 20161115, end: 20161115
  14. GASTER [Concomitant]
     Active Substance: FAMOTIDINE
     Route: 065
     Dates: start: 20161011, end: 20161115
  15. E KEPPRA [Concomitant]
     Active Substance: LEVETIRACETAM
     Route: 065
     Dates: start: 20161115, end: 20161117
  16. ALEVIATIN [Concomitant]
     Active Substance: PHENYTOIN SODIUM
     Route: 065
     Dates: start: 20161115, end: 20161115
  17. VEEN-F [Concomitant]
     Route: 065
     Dates: start: 20161115, end: 20161115
  18. CRESTOR [Concomitant]
     Active Substance: ROSUVASTATIN CALCIUM
     Route: 065
  19. AVASTIN [Concomitant]
     Active Substance: BEVACIZUMAB
     Dosage: (GENETICAL RECOMBINATION)
     Route: 065
     Dates: start: 20161011, end: 20161115
  20. SOLU-MEDROL [Concomitant]
     Active Substance: METHYLPREDNISOLONE SODIUM SUCCINATE
     Route: 065
     Dates: start: 20161115, end: 20161116
  21. BLOPRESS [Concomitant]
     Active Substance: CANDESARTAN CILEXETIL
     Route: 065

REACTIONS (2)
  - Anaphylactic reaction [Recovered/Resolved]
  - Posterior reversible encephalopathy syndrome [Recovered/Resolved]

NARRATIVE: CASE EVENT DATE: 20161115
